FAERS Safety Report 4361128-8 (Version None)
Quarter: 2004Q2

REPORT INFORMATION
  Report Type: 
  Country: None (occurrence: None)
  Receive Date: 20040511
  Receipt Date: 20040329
  Transmission Date: 20050107
  Serious: Yes (Other)
  Sender: FDA-Public Use
  Company Number: 2004203857US

PATIENT

DRUGS (1)
  1. COLESTID [Suspect]
     Indication: DIARRHOEA

REACTIONS (1)
  - LIVER FUNCTION TEST ABNORMAL [None]
